FAERS Safety Report 10222541 (Version 1)
Quarter: 2014Q1

REPORT INFORMATION
  Report Type: Spontaneous
  Country: US (occurrence: None)
  Receive Date: 20140306
  Receipt Date: 20140306
  Transmission Date: 20141002
  Serious: Yes (Other)
  Sender: FDA-Public Use
  Company Number: 163-21880-13050492

PATIENT
  Age: 75 Year
  Sex: Male
  Weight: 83.73 kg

DRUGS (2)
  1. REVLIMID (LENALIDOMIDE) (5 MILLIGRAM, CAPSULES) [Suspect]
     Indication: LYMPHOMA
     Dosage: 25 MG, 5 IN 1 D, PO
     Route: 048
     Dates: start: 201112
  2. RITUXAN (RITUXIMAB) (UNKNOWN) [Concomitant]

REACTIONS (1)
  - Platelet count decreased [None]
